FAERS Safety Report 10150893 (Version 1)
Quarter: 2014Q2

REPORT INFORMATION
  Report Type: Spontaneous
  Country: US (occurrence: US)
  Receive Date: 20140502
  Receipt Date: 20140502
  Transmission Date: 20141212
  Serious: Yes (Other)
  Sender: FDA-Public Use
  Company Number: US-BAXTER-2014BAX021186

PATIENT
  Sex: Male
  Weight: 3 kg

DRUGS (9)
  1. NEXTERONE_AMIODARONE, HYDROCHLORIDE 1.80 MG/ML_SOLUTION FOR INFUSION_B [Suspect]
     Indication: VENTRICULAR ARRHYTHMIA
     Dosage: RANGING FROM 9 TO 20 MG/KG
     Route: 042
  2. BREVIBLOC PREMIXED INJECTION (ESMOLOL HYDROCHLORIDE) [Suspect]
     Indication: VENTRICULAR ARRHYTHMIA
     Dosage: RANGING FROM 25 TO 75 MG/KG
     Route: 042
  3. LIDOCAINE [Suspect]
     Indication: VENTRICULAR ARRHYTHMIA
     Dosage: RANDING FROM 10 TO 50 MG/KG/MIN
     Route: 042
  4. MEXILETINE [Suspect]
     Indication: VENTRICULAR ARRHYTHMIA
     Dosage: DOSING RANGING FROM 9 TO 17 MG
     Route: 065
  5. FOSPHENYTOIN [Suspect]
     Indication: VENTRICULAR ARRHYTHMIA
     Dosage: DOSING RANGING FROM 6.8 TO 10 MG
     Route: 042
  6. AMIODARONE [Suspect]
     Indication: VENTRICULAR ARRHYTHMIA
     Dosage: RANGING FROM 10 TO 20 MG
     Route: 048
  7. AMIODARONE [Suspect]
     Dosage: DISCHARGE DOSE
     Route: 048
  8. PROPRANOLOL [Suspect]
     Indication: VENTRICULAR ARRHYTHMIA
     Route: 048
  9. PROPRANOLOL [Suspect]
     Dosage: DISCHARGE DOSE
     Route: 048

REACTIONS (1)
  - Convulsion [Unknown]
